FAERS Safety Report 9055205 (Version 1)
Quarter: 2013Q1

REPORT INFORMATION
  Report Type: Spontaneous
  Country: BR (occurrence: BR)
  Receive Date: 20130206
  Receipt Date: 20130206
  Transmission Date: 20140127
  Serious: Yes (Hospitalization)
  Sender: FDA-Public Use
  Company Number: BR-PFIZER INC-2013046782

PATIENT
  Age: 80 Year
  Sex: Female

DRUGS (6)
  1. LIPITOR [Suspect]
     Indication: BLOOD CHOLESTEROL
     Dosage: 20 MG, ONCE DAILY
     Route: 048
     Dates: start: 2012
  2. LIPITOR [Suspect]
     Indication: BLOOD CHOLESTEROL INCREASED
  3. ATENOLOL [Concomitant]
     Indication: BLOOD PRESSURE
  4. CORUS [Concomitant]
     Indication: BLOOD PRESSURE
  5. PLAVIX [Concomitant]
     Indication: BLOOD PRESSURE
  6. SOMALGIN CARDIO [Concomitant]
     Indication: BLOOD PRESSURE

REACTIONS (1)
  - Infarction [Unknown]
